FAERS Safety Report 5879778-6 (Version None)
Quarter: 2008Q3

REPORT INFORMATION
  Report Type: 
  Country: None (occurrence: None)
  Receive Date: 20080912
  Receipt Date: 20080902
  Transmission Date: 20090109
  Serious: Yes (Hospitalization)
  Sender: FDA-Public Use
  Company Number: BR-ROCHE-584846

PATIENT
  Age: 87 Year
  Sex: Female
  Weight: 58 kg

DRUGS (3)
  1. RIVOTRIL [Suspect]
     Indication: SLEEP DISORDER THERAPY
     Route: 048
     Dates: start: 20060101, end: 20080531
  2. NEULEPTIL [Suspect]
     Indication: DRUG USE FOR UNKNOWN INDICATION
     Route: 065
     Dates: start: 20080531
  3. RISPERIDONA [Suspect]
     Indication: DRUG USE FOR UNKNOWN INDICATION
     Route: 065
     Dates: start: 20080531

REACTIONS (3)
  - DEMENTIA ALZHEIMER'S TYPE [None]
  - HUMERUS FRACTURE [None]
  - INSOMNIA [None]
